FAERS Safety Report 5477660-X (Version None)
Quarter: 2007Q4

REPORT INFORMATION
  Report Type: 
  Country: None (occurrence: None)
  Receive Date: 20071002
  Receipt Date: 20070921
  Transmission Date: 20080405
  Serious: Yes (Death, Life-Threatening, Hospitalization)
  Sender: FDA-Public Use
  Company Number: TCI2006A01036

PATIENT
  Age: 71 Year
  Sex: Male

DRUGS (11)
  1. ACTOS [Suspect]
     Indication: TYPE 2 DIABETES MELLITUS
     Dosage: 15 MG (15 MG, 1 IN 1 D) PER ORAL; 15 MG (15 MG, 1 IN 1 D) PER ORAL
     Route: 048
     Dates: start: 20051104, end: 20060303
  2. ACTOS [Suspect]
     Indication: TYPE 2 DIABETES MELLITUS
     Dosage: 15 MG (15 MG, 1 IN 1 D) PER ORAL; 15 MG (15 MG, 1 IN 1 D) PER ORAL
     Route: 048
     Dates: start: 20060518, end: 20070215
  3. DILTIAZEM HCL [Suspect]
     Indication: HYPERTENSION
     Dosage: 90 MG (30 MG, 3 IN 1 D) PER ORAL
     Route: 048
     Dates: start: 19960427
  4. DILTIAZEM HCL [Suspect]
     Indication: MYOCARDIAL ISCHAEMIA
     Dosage: 90 MG (30 MG, 3 IN 1 D) PER ORAL
     Route: 048
     Dates: start: 19960427
  5. NICORANDIS (NICORANDIL) [Concomitant]
  6. ASPIRIN [Concomitant]
  7. ISOSORBIDE DINITRATE [Concomitant]
  8. ALLOPURINOL [Concomitant]
  9. GLYBURIDE [Concomitant]
  10. GLUCOBAY [Concomitant]
  11. RANITAC (RANITIDINE HYDROCHLORIDE) [Concomitant]

REACTIONS (4)
  - ATRIOVENTRICULAR BLOCK COMPLETE [None]
  - BACK PAIN [None]
  - PANCREATIC CARCINOMA [None]
  - PLEURAL EFFUSION [None]
